FAERS Safety Report 18288971 (Version 1)
Quarter: 2020Q3

REPORT INFORMATION
  Report Type: Spontaneous
  Country: US (occurrence: US)
  Receive Date: 20200921
  Receipt Date: 20200921
  Transmission Date: 20201103
  Serious: No
  Sender: FDA-Public Use
  Company Number: US-PFIZER INC-2020361449

PATIENT
  Sex: Female

DRUGS (2)
  1. NEURONTIN [Suspect]
     Active Substance: GABAPENTIN
     Dosage: 100 MG
  2. NEURONTIN [Suspect]
     Active Substance: GABAPENTIN
     Dosage: 200 MG

REACTIONS (2)
  - Hypersomnia [Unknown]
  - Nausea [Unknown]
